FAERS Safety Report 20174978 (Version 1)
Quarter: 2021Q4

REPORT INFORMATION
  Report Type: Spontaneous
  Country: JP (occurrence: JP)
  Receive Date: 20211213
  Receipt Date: 20211213
  Transmission Date: 20220303
  Serious: Yes (Other)
  Sender: FDA-Public Use
  Company Number: JP-Accord-246697

PATIENT
  Age: 78 Year
  Sex: Male

DRUGS (2)
  1. FLUOROURACIL [Suspect]
     Active Substance: FLUOROURACIL
     Indication: Gastric cancer stage III
     Dosage: 5-FU 2,400 MG / M2 / 46 H
  2. LEVOLEUCOVORIN CALCIUM [Suspect]
     Active Substance: LEVOLEUCOVORIN CALCIUM
     Indication: Gastric cancer stage III

REACTIONS (6)
  - Neutrophil count decreased [Unknown]
  - Leukopenia [Unknown]
  - Platelet count decreased [Unknown]
  - Anaemia [Unknown]
  - Blood creatinine increased [Unknown]
  - Neuropathy peripheral [Unknown]
